FAERS Safety Report 18578553 (Version 1)
Quarter: 2020Q4

REPORT INFORMATION
  Report Type: Spontaneous
  Country: US (occurrence: US)
  Receive Date: 20201204
  Receipt Date: 20201204
  Transmission Date: 20210114
  Serious: Yes (Death)
  Sender: FDA-Public Use
  Company Number: US-PFIZER INC-2020474747

PATIENT
  Age: 39 Year
  Sex: Female

DRUGS (5)
  1. AMPHOTERICIN B. [Concomitant]
     Active Substance: AMPHOTERICIN B
     Indication: MUCORMYCOSIS
     Dosage: 50 MG, DAILY
  2. OXACILLIN [Concomitant]
     Active Substance: OXACILLIN SODIUM
     Indication: STAPHYLOCOCCAL INFECTION
     Dosage: 8 G, DAILY
     Route: 042
  3. OXACILLIN [Concomitant]
     Active Substance: OXACILLIN SODIUM
     Indication: MUCORMYCOSIS
  4. AMPHOTERICIN B. [Concomitant]
     Active Substance: AMPHOTERICIN B
     Indication: STAPHYLOCOCCAL INFECTION
  5. GENTAMICIN SULFATE. [Suspect]
     Active Substance: GENTAMICIN SULFATE
     Indication: PNEUMONIA PSEUDOMONAL
     Dosage: 100 MG, 3X/DAY (EVERY 8 HOURS)
     Route: 042

REACTIONS (1)
  - Pathogen resistance [Fatal]
